FAERS Safety Report 5650219-7 (Version None)
Quarter: 2008Q1

REPORT INFORMATION
  Report Type: 
  Country: None (occurrence: None)
  Receive Date: 20080303
  Receipt Date: 20080212
  Transmission Date: 20080703
  Serious: Yes (Other)
  Sender: FDA-Public Use
  Company Number: S08-FRA-00689-01

PATIENT
  Age: 91 Year
  Sex: Female

DRUGS (10)
  1. ESCITALOPRAM [Suspect]
     Indication: DEPRESSION
     Dosage: 10 MG QD; PO
     Route: 048
     Dates: start: 20071012
  2. LEVOFLOXACIN [Suspect]
     Indication: PYREXIA
     Dosage: 500 MG QD; PO
     Route: 048
     Dates: start: 20071024, end: 20071102
  3. LOVENOX [Suspect]
     Dosage: 4000 IU QD;SC
     Route: 058
  4. ZYPREXA [Suspect]
     Indication: BIPOLAR DISORDER
     Dosage: 5 MG QD;PO
     Route: 048
     Dates: end: 20071102
  5. INEXIUM      (ESOMEPRAZOLE) [Suspect]
     Indication: HIATUS HERNIA
     Dosage: 20 MG QD;PO
     Route: 048
  6. ZOLPIDEM [Suspect]
     Indication: INSOMNIA
     Dosage: 1 QD;PO
     Route: 048
  7. XANAX [Concomitant]
  8. AUGMENTIN '125' [Concomitant]
  9. ROCEPHIN [Concomitant]
  10. CLARITHROMYCIN [Concomitant]

REACTIONS (2)
  - AGRANULOCYTOSIS [None]
  - DERMATITIS BULLOUS [None]
